FAERS Safety Report 10572915 (Version 1)
Quarter: 2014Q4

REPORT INFORMATION
  Report Type: Spontaneous
  Country: US (occurrence: None)
  Receive Date: 20141107
  Receipt Date: 20141107
  Transmission Date: 20150529
  Serious: Yes (Hospitalization)
  Sender: FDA-Public Use
  Company Number: None

PATIENT
  Age: 63 Year
  Sex: Male
  Weight: 72.6 kg

DRUGS (2)
  1. RITUXIMAB(MOAB C2B8 ANTI CD20, CHIMERIC) [Suspect]
     Active Substance: RITUXIMAB
     Dosage: FOR STEP 2, RITUXIMAB IS ADMINSTERED EVERY 8 WEEKS
  2. LENALIDOMIDE [Suspect]
     Active Substance: LENALIDOMIDE
     Dosage: DOSE PERMANETLY DISCONTINUED 10/01/2014 DUE TO PE

REACTIONS (14)
  - Pulmonary embolism [None]
  - Pneumonia necrotising [None]
  - Deep vein thrombosis [None]
  - Tachypnoea [None]
  - Venous thrombosis limb [None]
  - Pulmonary infarction [None]
  - Pleural effusion [None]
  - Night sweats [None]
  - Lung infection [None]
  - Septic embolus [None]
  - Pericardial effusion [None]
  - Tachycardia [None]
  - Venous occlusion [None]
  - Anaemia [None]

NARRATIVE: CASE EVENT DATE: 20141002
